FAERS Safety Report 9587261 (Version 1)
Quarter: 2013Q4

REPORT INFORMATION
  Report Type: Spontaneous
  Country: US (occurrence: US)
  Receive Date: 20131003
  Receipt Date: 20131003
  Transmission Date: 20140711
  Serious: No
  Sender: FDA-Public Use
  Company Number: US-009507513-1310USA000546

PATIENT
  Sex: Female

DRUGS (2)
  1. CLARITIN [Suspect]
     Indication: HYPERSENSITIVITY
     Dosage: 10 MG, QD
     Route: 048
     Dates: start: 201308
  2. CLARITIN [Suspect]
     Dosage: 10 MG, UNKNOWN
     Route: 048
     Dates: start: 20130924

REACTIONS (1)
  - Accidental overdose [Unknown]
